FAERS Safety Report 5350471-1 (Version None)
Quarter: 2007Q2

REPORT INFORMATION
  Report Type: 
  Country: None (occurrence: None)
  Receive Date: 20070608
  Receipt Date: 20070531
  Transmission Date: 20071010
  Serious: Yes (Other)
  Sender: FDA-Public Use
  Company Number: PHEH2007US01650

PATIENT
  Age: 48 Year
  Sex: Female

DRUGS (1)
  1. AREDIA [Suspect]
     Indication: OSTEOPENIA
     Dosage: 60MG, Q 3 MONTHS
     Route: 042
     Dates: start: 20050101, end: 20060901

REACTIONS (4)
  - BONE EROSION [None]
  - FEELING OF DESPAIR [None]
  - OSTEONECROSIS [None]
  - PAIN IN JAW [None]
